FAERS Safety Report 8833617 (Version 2)
Quarter: 2012Q4

REPORT INFORMATION
  Report Type: 
  Country: FR (occurrence: FR)
  Receive Date: 20121010
  Receipt Date: 20121030
  Transmission Date: 20130627
  Serious: Yes (Other)
  Sender: FDA-Public Use
  Company Number: FR-ROCHE-1140071

PATIENT
  Age: 34 Year
  Sex: Male

DRUGS (21)
  1. ROACCUTANE [Suspect]
     Indication: PRODUCT USED FOR UNKNOWN INDICATION
     Route: 065
  2. ROACCUTANE [Suspect]
     Route: 065
  3. ROACCUTANE [Suspect]
     Dosage: 10 mg at the dosage of three tablets for one month
     Route: 065
     Dates: start: 20000920
  4. ROACCUTANE [Suspect]
     Dosage: 50 mg
     Route: 065
     Dates: start: 20001103
  5. ROACCUTANE [Suspect]
     Route: 065
     Dates: start: 20001206
  6. ROACCUTANE [Suspect]
     Route: 065
     Dates: start: 20010104
  7. DOXY [Concomitant]
     Route: 065
     Dates: start: 20010911
  8. DOXY [Concomitant]
     Route: 065
     Dates: start: 20010911
  9. DOXY [Concomitant]
     Route: 065
     Dates: start: 20011109
  10. DOXY [Concomitant]
     Route: 065
     Dates: start: 20021008
  11. DOXY [Concomitant]
     Route: 065
     Dates: start: 20021008
  12. DOXY [Concomitant]
     Route: 065
     Dates: start: 20030429
  13. DOXY [Concomitant]
     Route: 065
     Dates: start: 20030902
  14. DOXY [Concomitant]
     Route: 065
     Dates: start: 20040409
  15. DOXY [Concomitant]
     Route: 065
     Dates: start: 20041025
  16. DOXY [Concomitant]
     Route: 065
     Dates: start: 20050325
  17. EFFEDERM [Concomitant]
     Dosage: For one month
     Route: 065
     Dates: start: 20010911
  18. ERYFLUID [Concomitant]
     Route: 065
     Dates: start: 20040409
  19. CURACNE [Concomitant]
     Dosage: 10 mg (one capsule in the morning) for one month
     Route: 065
  20. CURACNE [Concomitant]
     Route: 065
  21. DEXERYL (FRANCE) [Concomitant]

REACTIONS (6)
  - Vertigo [Unknown]
  - Loss of consciousness [Unknown]
  - Anaemia [Unknown]
  - Dehydration [Unknown]
  - Gastric disorder [Unknown]
  - Hiatus hernia [Unknown]
